FAERS Safety Report 8555341-3 (Version None)
Quarter: 2012Q3

REPORT INFORMATION
  Report Type: 
  Country: None (occurrence: None)
  Receive Date: 20120731
  Receipt Date: 20111227
  Transmission Date: 20120928
  Serious: No
  Sender: FDA-Public Use
  Company Number: US-ASTRAZENECA-2011SE29949

PATIENT
  Age: 48 Year
  Sex: Male
  Weight: 90.7 kg

DRUGS (5)
  1. SEROQUEL [Suspect]
     Indication: BIPOLAR I DISORDER
     Route: 048
     Dates: start: 20090101
  2. SEROQUEL [Suspect]
     Route: 048
  3. SEROQUEL [Suspect]
     Dosage: TWO 200 MILLIGRAM AND ONE 100 MILLIGRAM FOR TOTAL OF 500 MILLIGRAM AT NIGHT
     Route: 048
  4. SEROQUEL [Suspect]
     Route: 048
     Dates: start: 20100101
  5. SEROQUEL [Suspect]
     Route: 048

REACTIONS (8)
  - ADVERSE EVENT [None]
  - INAPPROPRIATE SCHEDULE OF DRUG ADMINISTRATION [None]
  - SOMNOLENCE [None]
  - MOVEMENT DISORDER [None]
  - FATIGUE [None]
  - WEIGHT INCREASED [None]
  - DRY MOUTH [None]
  - DRUG DOSE OMISSION [None]
